FAERS Safety Report 22052948 (Version 1)
Quarter: 2023Q1

REPORT INFORMATION
  Report Type: Spontaneous
  Country: GB (occurrence: GB)
  Receive Date: 20230302
  Receipt Date: 20230302
  Transmission Date: 20230418
  Serious: Yes (Other)
  Sender: FDA-Public Use
  Company Number: None

PATIENT
  Sex: Female

DRUGS (1)
  1. NEXPLANON [Suspect]
     Active Substance: ETONOGESTREL
     Indication: Contraception
     Dosage: UNK
     Dates: start: 202007, end: 202111

REACTIONS (9)
  - Adverse drug reaction [Not Recovered/Not Resolved]
  - Depressed mood [Recovered/Resolved with Sequelae]
  - Apathy [Recovering/Resolving]
  - Migraine [Not Recovered/Not Resolved]
  - Headache [Recovering/Resolving]
  - Mood altered [Recovered/Resolved]
  - Anxiety [Recovering/Resolving]
  - Fatigue [Not Recovered/Not Resolved]
  - Alopecia [Recovered/Resolved]

NARRATIVE: CASE EVENT DATE: 20210101
